FAERS Safety Report 9262288 (Version 1)
Quarter: 2013Q2

REPORT INFORMATION
  Report Type: Spontaneous
  Country: US (occurrence: US)
  Receive Date: 20130430
  Receipt Date: 20130430
  Transmission Date: 20140414
  Serious: No
  Sender: FDA-Public Use
  Company Number: US-BIOGENIDEC-2013BI038419

PATIENT
  Sex: Female

DRUGS (2)
  1. TYSABRI [Suspect]
     Indication: MULTIPLE SCLEROSIS
     Route: 042
     Dates: start: 20120417, end: 20121206
  2. AVONEX [Concomitant]
     Indication: MULTIPLE SCLEROSIS
     Route: 030
     Dates: start: 20091118

REACTIONS (7)
  - Fall [Unknown]
  - Amnesia [Not Recovered/Not Resolved]
  - Catheter site bruise [Unknown]
  - Device related infection [Unknown]
  - Cognitive disorder [Not Recovered/Not Resolved]
  - Insomnia [Unknown]
  - Speech disorder [Not Recovered/Not Resolved]
